FAERS Safety Report 14366423 (Version 4)
Quarter: 2021Q1

REPORT INFORMATION
  Report Type: Spontaneous
  Country: ES (occurrence: ES)
  Receive Date: 20180109
  Receipt Date: 20210305
  Transmission Date: 20210419
  Serious: Yes (Hospitalization, Other)
  Sender: FDA-Public Use
  Company Number: ES-AUROBINDO-AUR-APL-2018-001636

PATIENT
  Age: 64 Year
  Sex: Female

DRUGS (3)
  1. ZOLEDRONIC ACID [Suspect]
     Active Substance: ZOLEDRONIC ACID
     Dosage: UNK, EVERY 3 MONTHS OVER A 3?YEAR PERIOD
     Route: 042
  2. ZOLEDRONIC ACID [Suspect]
     Active Substance: ZOLEDRONIC ACID
     Indication: METASTASES TO BONE
     Dosage: UNK
     Route: 042
  3. ZOLEDRONIC ACID [Suspect]
     Active Substance: ZOLEDRONIC ACID
     Dosage: 4 MILLIGRAM QMO
     Route: 042
     Dates: start: 2006, end: 2008

REACTIONS (13)
  - Oral disorder [Unknown]
  - Purulent discharge [Unknown]
  - Exposed bone in jaw [Unknown]
  - Oral pain [Unknown]
  - Bone sequestrum [Unknown]
  - Osteonecrosis of jaw [Recovered/Resolved]
  - Eating disorder [Unknown]
  - Actinomycosis [Recovered/Resolved]
  - Erythema [Unknown]
  - Tooth impacted [Unknown]
  - Speech disorder [Unknown]
  - Oedema [Unknown]
  - Oral discomfort [Unknown]
